FAERS Safety Report 9107534 (Version 2)
Quarter: 2013Q1

REPORT INFORMATION
  Report Type: Spontaneous
  Country: US (occurrence: US)
  Receive Date: 20130221
  Receipt Date: 20130328
  Transmission Date: 20140127
  Serious: Yes (Other)
  Sender: FDA-Public Use
  Company Number: US-PFIZER INC-2013065040

PATIENT
  Sex: Female

DRUGS (2)
  1. LYRICA [Suspect]
     Dosage: 75 MG
  2. LYRICA [Suspect]
     Dosage: 25 MG, 4X/DAY

REACTIONS (5)
  - Accident [Unknown]
  - Paralysis [Unknown]
  - Hypokinesia [Unknown]
  - Gait disturbance [Unknown]
  - Drug ineffective [Unknown]
